FAERS Safety Report 8275778-X (Version None)
Quarter: 2012Q2

REPORT INFORMATION
  Report Type: 
  Country: None (occurrence: None)
  Receive Date: 20120410
  Receipt Date: 20120410
  Transmission Date: 20120825
  Serious: Yes (Hospitalization)
  Sender: FDA-Public Use
  Company Number: None

PATIENT
  Age: 69 Year
  Sex: Male
  Weight: 75.5 kg

DRUGS (2)
  1. PIPERACILLIN AND TAZOBACTAM [Suspect]
     Indication: PROPHYLAXIS
     Dosage: 3.375 GM QID IV
     Route: 042
     Dates: start: 20110624, end: 20110627
  2. VANCOMYCIN [Suspect]
     Indication: PROPHYLAXIS
     Dosage: 1 GM BID IV
     Route: 042
     Dates: start: 20110624, end: 20110627

REACTIONS (2)
  - NEPHROPATHY [None]
  - RENAL TUBULAR NECROSIS [None]
